FAERS Safety Report 5566056-8 (Version None)
Quarter: 2007Q4

REPORT INFORMATION
  Report Type: 
  Country: None (occurrence: None)
  Receive Date: 20071217
  Receipt Date: 20071217
  Transmission Date: 20080405
  Serious: Yes (Other)
  Sender: FDA-Public Use
  Company Number: None

PATIENT
  Age: 59 Year
  Sex: Female
  Weight: 83.9154 kg

DRUGS (1)
  1. SPIRONOLACTONE [Suspect]
     Indication: ALOPECIA
     Dosage: 1 TABLET TWICE DAILY PO
     Route: 048
     Dates: start: 20071211, end: 20071211

REACTIONS (4)
  - CARDIAC DISORDER [None]
  - DEPRESSION [None]
  - FATIGUE [None]
  - RASH [None]
